FAERS Safety Report 5054984-1 (Version None)
Quarter: 2006Q3

REPORT INFORMATION
  Report Type: 
  Country: None (occurrence: None)
  Receive Date: 20060719
  Receipt Date: 20060508
  Transmission Date: 20061208
  Serious: Yes (Other)
  Sender: FDA-Public Use
  Company Number: NL-GLAXOSMITHKLINE-B0423614A

PATIENT
  Age: 59 Year
  Sex: Female
  Weight: 99 kg

DRUGS (5)
  1. ROSIGLITAZONE MALEATE [Suspect]
     Indication: DIABETES MELLITUS NON-INSULIN-DEPENDENT
     Dosage: 4MG TWICE PER DAY
     Route: 065
     Dates: start: 20050601, end: 20060412
  2. METFORMIN [Concomitant]
     Dosage: 500MG TWICE PER DAY
     Route: 065
     Dates: start: 20020601
  3. NOVOMIX [Concomitant]
     Dosage: 100IUML THREE TIMES PER DAY
     Route: 065
     Dates: start: 19950425
  4. HALDOL [Concomitant]
     Dosage: 1MG UNKNOWN
     Route: 065
     Dates: start: 19920723
  5. OMEPRAZOLE [Concomitant]
     Dosage: 20MG UNKNOWN
     Dates: start: 20051220

REACTIONS (1)
  - PANCYTOPENIA [None]
